FAERS Safety Report 9435247 (Version 1)
Quarter: 2013Q3

REPORT INFORMATION
  Report Type: Spontaneous
  Country: BR (occurrence: BR)
  Receive Date: 20130801
  Receipt Date: 20130801
  Transmission Date: 20140515
  Serious: Yes (Hospitalization, Other)
  Sender: FDA-Public Use
  Company Number: BR-AMGEN-BRASP2013054035

PATIENT
  Age: 43 Year
  Sex: Female
  Weight: 48 kg

DRUGS (3)
  1. ENBREL [Suspect]
     Indication: PSORIATIC ARTHROPATHY
     Dosage: 50 MG, ONCE A WEEK
     Route: 058
     Dates: start: 2012
  2. METHOTREXATE [Concomitant]
     Dosage: 1 ML, ONCE A WEEK
     Route: 058
     Dates: start: 2009
  3. ARAVA [Concomitant]
     Dosage: 1 TABLET OF UNSPECIFIED DOSAGE, EVERY DAY
     Dates: start: 201301

REACTIONS (9)
  - Vaginal haemorrhage [Unknown]
  - Menorrhagia [Unknown]
  - Uterine leiomyoma [Unknown]
  - Pain [Recovering/Resolving]
  - Incision site inflammation [Unknown]
  - Vaginal discharge [Unknown]
  - Pruritus genital [Unknown]
  - Injection site swelling [Unknown]
  - Injection site erythema [Unknown]
